FAERS Safety Report 14207885 (Version 4)
Quarter: 2018Q1

REPORT INFORMATION
  Report Type: Spontaneous
  Country: GB (occurrence: GB)
  Receive Date: 20171121
  Receipt Date: 20180309
  Transmission Date: 20180508
  Serious: Yes (Death, Hospitalization, Other)
  Sender: FDA-Public Use
  Company Number: GB-ORION CORPORATION ORION PHARMA-TREX2017-3745

PATIENT
  Age: 59 Year
  Sex: Male

DRUGS (4)
  1. METHOTREXATE (TRADE NAME UNKNOWN) [Suspect]
     Active Substance: METHOTREXATE
     Indication: PSORIASIS
     Route: 048
     Dates: start: 200411, end: 201505
  2. METHOTREXATE (TRADE NAME UNKNOWN) [Suspect]
     Active Substance: METHOTREXATE
     Indication: PSORIATIC ARTHROPATHY
  3. COMPETACT [Concomitant]
     Active Substance: METFORMIN HYDROCHLORIDE\PIOGLITAZONE HYDROCHLORIDE
     Route: 065
     Dates: start: 20110118
  4. AVANDAMET [Concomitant]
     Active Substance: METFORMIN HYDROCHLORIDE\ROSIGLITAZONE MALEATE
     Route: 065
     Dates: start: 20060502, end: 201101

REACTIONS (40)
  - Oesophageal varices haemorrhage [Fatal]
  - Body temperature increased [Unknown]
  - Photosensitivity reaction [Unknown]
  - Hepatic failure [Fatal]
  - Bone marrow failure [Fatal]
  - Skin infection [Unknown]
  - Nasopharyngitis [Unknown]
  - Influenza [Unknown]
  - Hypersensitivity [Unknown]
  - Cognitive disorder [Unknown]
  - Sepsis [Fatal]
  - Osteomyelitis [Fatal]
  - Anaemia [Fatal]
  - Hepatic encephalopathy [Fatal]
  - Mouth ulceration [Unknown]
  - Wheezing [Unknown]
  - Platelet count decreased [Fatal]
  - Hepatic fibrosis [Unknown]
  - Infection [Unknown]
  - Dyspnoea [Unknown]
  - Cough [Unknown]
  - Fluid retention [Unknown]
  - Hepatosplenomegaly [Unknown]
  - Nodular regenerative hyperplasia [Fatal]
  - Gastrointestinal haemorrhage [Fatal]
  - General physical health deterioration [Unknown]
  - Gait inability [Unknown]
  - Intertrigo [Unknown]
  - Pneumonia [Fatal]
  - Bedridden [Unknown]
  - Unresponsive to stimuli [Unknown]
  - Fatigue [None]
  - Urinary tract infection [Unknown]
  - Decubitus ulcer [Unknown]
  - Abscess [Unknown]
  - Portal hypertension [Fatal]
  - Kidney infection [Fatal]
  - Haemorrhage [Fatal]
  - Pulmonary fibrosis [Unknown]
  - Weight increased [Unknown]

NARRATIVE: CASE EVENT DATE: 201504
